FAERS Safety Report 8477470-5 (Version None)
Quarter: 2012Q2

REPORT INFORMATION
  Report Type: 
  Country: None (occurrence: None)
  Receive Date: 20120629
  Receipt Date: 20120624
  Transmission Date: 20120825
  Serious: Yes (Disabling, Other)
  Sender: FDA-Public Use
  Company Number: PHHY2012MX054944

PATIENT
  Sex: Female

DRUGS (1)
  1. EXFORGE HCT [Suspect]
     Indication: HYPERTENSION
     Dosage: 2 DF (VALS 320 MG, AMLO 10 MG, HYDR 25 MG), PER DAY

REACTIONS (2)
  - SPEECH DISORDER [None]
  - CEREBRAL INFARCTION [None]
